FAERS Safety Report 4366627-0 (Version None)
Quarter: 2004Q2

REPORT INFORMATION
  Report Type: 
  Country: None (occurrence: None)
  Receive Date: 20040524
  Receipt Date: 20040506
  Transmission Date: 20050107
  Serious: Yes (Hospitalization)
  Sender: FDA-Public Use
  Company Number: DSA_24383_2004

PATIENT
  Age: 41 Year
  Sex: Male

DRUGS (2)
  1. ENALAPRIL MALEATE [Suspect]
     Indication: GLOMERULONEPHRITIS
     Dosage: 10 MG QD PO
     Route: 048
     Dates: start: 19940101
  2. FUROSEMIDE/SPIRONOLACTONE [Concomitant]

REACTIONS (3)
  - BENCE JONES PROTEINURIA [None]
  - BURNING SENSATION [None]
  - CARCINOMA [None]
